FAERS Safety Report 8322253-X (Version None)
Quarter: 2012Q2

REPORT INFORMATION
  Report Type: 
  Country: None (occurrence: None)
  Receive Date: 20120430
  Receipt Date: 20120420
  Transmission Date: 20120825
  Serious: Yes (Other)
  Sender: FDA-Public Use
  Company Number: CA-US-EMD SERONO, INC.-7094891

PATIENT
  Sex: Female

DRUGS (2)
  1. REBIF [Suspect]
     Indication: PRODUCT USED FOR UNKNOWN INDICATION
     Route: 058
     Dates: start: 20001212
  2. MIGRAINE MEDICATION [Concomitant]
     Indication: MIGRAINE

REACTIONS (5)
  - LARYNGITIS [None]
  - ENDOMETRIOSIS [None]
  - VOCAL CORD DISORDER [None]
  - PLATELET COUNT DECREASED [None]
  - MIGRAINE [None]
